FAERS Safety Report 18670268 (Version 1)
Quarter: 2020Q4

REPORT INFORMATION
  Report Type: Spontaneous
  Country: DK (occurrence: DK)
  Receive Date: 20201228
  Receipt Date: 20201228
  Transmission Date: 20210114
  Serious: Yes (Hospitalization)
  Sender: FDA-Public Use
  Company Number: NVSC2020DK340311

PATIENT
  Age: 85 Year
  Sex: Female
  Weight: 77 kg

DRUGS (1)
  1. DICILLIN [Suspect]
     Active Substance: DICLOXACILLIN SODIUM
     Indication: SKIN INFECTION
     Dosage: 4000 MG, QD
     Route: 048
     Dates: start: 20201029

REACTIONS (2)
  - Diarrhoea [Recovering/Resolving]
  - Clostridium difficile infection [Recovering/Resolving]

NARRATIVE: CASE EVENT DATE: 20201120
